FAERS Safety Report 6458741-0 (Version None)
Quarter: 2009Q4

REPORT INFORMATION
  Report Type: 
  Country: None (occurrence: None)
  Receive Date: 20091120
  Receipt Date: 20091105
  Transmission Date: 20100525
  Serious: Yes (Hospitalization, Other)
  Sender: FDA-Public Use
  Company Number: AUR-APL-2009-00958

PATIENT
  Age: 48 Year
  Sex: Female

DRUGS (4)
  1. CLINDAMYCIN [Suspect]
     Dosage: ORAL
     Route: 048
  2. CHLORPHENIRAMINE [Suspect]
     Dosage: ORAL
     Route: 048
  3. BETAMETHASONE [Suspect]
     Dosage: ORAL
     Route: 048
  4. PARACETAMOL [Suspect]
     Dosage: ORAL
     Route: 048

REACTIONS (7)
  - BLOOD PRESSURE INCREASED [None]
  - BLOOD SODIUM DECREASED [None]
  - BLOOD UREA INCREASED [None]
  - CHOLESTASIS [None]
  - HEADACHE [None]
  - STEVENS-JOHNSON SYNDROME [None]
  - WRONG DRUG ADMINISTERED [None]
